FAERS Safety Report 8131920-2 (Version None)
Quarter: 2012Q1

REPORT INFORMATION
  Report Type: 
  Country: None (occurrence: None)
  Receive Date: 20120213
  Receipt Date: 20120208
  Transmission Date: 20120608
  Serious: Yes (Hospitalization)
  Sender: FDA-Public Use
  Company Number: SE-PFIZER INC-2012033903

PATIENT
  Age: 70 Year
  Sex: Male

DRUGS (9)
  1. MADOPARK [Concomitant]
     Dosage: 100MG/25MG
  2. MADOPARK - SLOW RELEASE [Concomitant]
     Dosage: UNK
  3. LACTULOSE [Concomitant]
     Dosage: UNK
  4. ORSTANORM [Concomitant]
     Dosage: 5 MG, UNK
  5. MIRTAZAPINE [Concomitant]
     Dosage: UNK
  6. BICALUTAMIDE [Concomitant]
     Dosage: UNK
  7. CLONAZEPAM [Concomitant]
     Dosage: 0.5 MG, UNK
  8. TOVIAZ [Suspect]
     Indication: URINARY INCONTINENCE
     Dosage: UNK
     Route: 048
     Dates: end: 20111028
  9. ASPIRIN [Concomitant]
     Dosage: 75 MG, UNK

REACTIONS (7)
  - COMMUNICATION DISORDER [None]
  - DISORIENTATION [None]
  - BEDRIDDEN [None]
  - FATIGUE [None]
  - SOMNOLENCE [None]
  - EATING DISORDER [None]
  - MALAISE [None]
